FAERS Safety Report 20154325 (Version 1)
Quarter: 2021Q4

REPORT INFORMATION
  Report Type: Spontaneous
  Country: CA (occurrence: CA)
  Receive Date: 20211207
  Receipt Date: 20211207
  Transmission Date: 20220303
  Serious: Yes (Hospitalization, Other)
  Sender: FDA-Public Use
  Company Number: CA-AUROBINDO-AUR-APL-2021-050134

PATIENT
  Age: 86 Year
  Sex: Male

DRUGS (1)
  1. VALACYCLOVIR HYDROCHLORIDE [Suspect]
     Active Substance: VALACYCLOVIR HYDROCHLORIDE
     Indication: Herpes zoster
     Dosage: 4000 MILLIGRAM
     Route: 048

REACTIONS (7)
  - Confusional state [Unknown]
  - Delirium [Unknown]
  - Dysarthria [Unknown]
  - Fatigue [Unknown]
  - Hallucination, visual [Unknown]
  - Nausea [Unknown]
  - Product prescribing error [Unknown]
